FAERS Safety Report 15889853 (Version 1)
Quarter: 2019Q1

REPORT INFORMATION
  Report Type: Spontaneous
  Country: US (occurrence: US)
  Receive Date: 20190130
  Receipt Date: 20190130
  Transmission Date: 20190417
  Serious: Yes (Disabling)
  Sender: FDA-Public Use
  Company Number: None

PATIENT
  Age: 44 Year
  Sex: Female
  Weight: 57.6 kg

DRUGS (7)
  1. LORAZEPAM. [Concomitant]
     Active Substance: LORAZEPAM
  2. TYLENOL PM [Concomitant]
     Active Substance: ACETAMINOPHEN\DIPHENHYDRAMINE
  3. ONDANSETRON [Concomitant]
     Active Substance: ONDANSETRON
  4. LAMOTRIGINE. [Concomitant]
     Active Substance: LAMOTRIGINE
  5. OLMESARTAN MEDOXOMIL. [Suspect]
     Active Substance: OLMESARTAN MEDOXOMIL
     Indication: HYPERTENSION
     Dosage: ?          QUANTITY:1 TABLET(S);?
     Route: 048
     Dates: start: 20181204, end: 20190127
  6. DEXILANT [Concomitant]
     Active Substance: DEXLANSOPRAZOLE
  7. RANITIDINE. [Concomitant]
     Active Substance: RANITIDINE

REACTIONS (6)
  - Weight decreased [None]
  - Nausea [None]
  - Diarrhoea [None]
  - Dizziness [None]
  - Abdominal distension [None]
  - Decreased appetite [None]

NARRATIVE: CASE EVENT DATE: 20190128
